FAERS Safety Report 4772463-3 (Version None)
Quarter: 2005Q3

REPORT INFORMATION
  Report Type: 
  Country: None (occurrence: None)
  Receive Date: 20050916
  Receipt Date: 20050916
  Transmission Date: 20060218
  Serious: Yes (Life-Threatening)
  Sender: FDA-Public Use
  Company Number: None

PATIENT
  Age: 24 Year
  Sex: Female

DRUGS (6)
  1. ZOMETA [Suspect]
     Indication: ACUTE MYELOID LEUKAEMIA
     Dosage: 4 MG IV X 4 DOSES Q 3 MONTHS
     Route: 042
     Dates: start: 20050830
  2. ZOMETA [Suspect]
     Indication: TRANSPLANT
     Dosage: 4 MG IV X 4 DOSES Q 3 MONTHS
     Route: 042
     Dates: start: 20050830
  3. LUPRON [Concomitant]
  4. ZOVIRAX [Concomitant]
  5. FLUCONAZOLE [Concomitant]
  6. PRILOSEC [Concomitant]

REACTIONS (2)
  - HYPOCALCAEMIA [None]
  - TETANY [None]
